FAERS Safety Report 4426492-X (Version None)
Quarter: 2004Q3

REPORT INFORMATION
  Report Type: 
  Country: None (occurrence: None)
  Receive Date: 20040816
  Receipt Date: 20040803
  Transmission Date: 20050211
  Serious: Yes (Other)
  Sender: FDA-Public Use
  Company Number: US-JNJFOC-20040600355

PATIENT
  Sex: Female
  Weight: 61.69 kg

DRUGS (6)
  1. REMICADE [Suspect]
     Indication: RHEUMATOID ARTHRITIS
     Route: 042
  2. METHOTREXATE [Concomitant]
     Route: 058
  3. METHOTREXATE [Concomitant]
     Route: 058
  4. SOLU-MEDROL [Concomitant]
  5. BENADRYL [Concomitant]
  6. LEVOXYL [Concomitant]
     Route: 049

REACTIONS (5)
  - DIZZINESS [None]
  - LUPUS-LIKE SYNDROME [None]
  - LYMPHADENOPATHY [None]
  - MEMORY IMPAIRMENT [None]
  - SUPRAVENTRICULAR TACHYCARDIA [None]
